FAERS Safety Report 10765796 (Version 1)
Quarter: 2015Q1

REPORT INFORMATION
  Report Type: Spontaneous
  Country: US (occurrence: None)
  Receive Date: 20150204
  Receipt Date: 20150204
  Transmission Date: 20150721
  Serious: Yes (Life-Threatening, Hospitalization, Disabling)
  Sender: FDA-Public Use
  Company Number: None

PATIENT
  Age: 70 Year
  Sex: Female
  Weight: 117 kg

DRUGS (2)
  1. KENALOG [Suspect]
     Active Substance: TRIAMCINOLONE ACETONIDE
     Indication: SCIATICA
     Dosage: BY INJECTION
     Dates: start: 200801, end: 20080905
  2. MARSHAMELLOW FOR BLADDER [Concomitant]

REACTIONS (1)
  - Paralysis [None]

NARRATIVE: CASE EVENT DATE: 20080905
